FAERS Safety Report 13234203 (Version 1)
Quarter: 2017Q1

REPORT INFORMATION
  Report Type: Spontaneous
  Country: BR (occurrence: BR)
  Receive Date: 20170215
  Receipt Date: 20170215
  Transmission Date: 20170428
  Serious: Yes (Hospitalization)
  Sender: FDA-Public Use
  Company Number: BR-GLAXOSMITHKLINE-BR2017GSK020148

PATIENT
  Sex: Female

DRUGS (1)
  1. AVAMYS [Suspect]
     Active Substance: FLUTICASONE FUROATE
     Indication: PRODUCT USED FOR UNKNOWN INDICATION

REACTIONS (9)
  - Dyspnoea [Unknown]
  - Nasal oedema [Unknown]
  - Erythema [Unknown]
  - Laryngospasm [Unknown]
  - Ear swelling [Unknown]
  - Pruritus [Unknown]
  - Swollen tongue [Unknown]
  - Lip swelling [Unknown]
  - Hypersensitivity [Unknown]
